FAERS Safety Report 24044335 (Version 1)
Quarter: 2024Q3

REPORT INFORMATION
  Report Type: Report from Study
  Country: RU (occurrence: RU)
  Receive Date: 20240703
  Receipt Date: 20240703
  Transmission Date: 20241017
  Serious: Yes (Other)
  Sender: ROCHE
  Company Number: RU-ROCHE-10000009983

PATIENT
  Age: 56 Year
  Sex: Female

DRUGS (2)
  1. COLUMVI [Suspect]
     Active Substance: GLOFITAMAB-GXBM
     Indication: B-cell lymphoma
     Dosage: 05/APR - 10 MG, 12/APR - 30 MG, 03/MAY/2024 - 30 MG, 24/MAY - 30?MG. 14/MAY/2024 POSTPONING THE NEXT
     Route: 042
     Dates: start: 20240329
  2. GAZYVA [Suspect]
     Active Substance: OBINUTUZUMAB
     Indication: B-cell lymphoma
     Route: 042
     Dates: start: 20240322

REACTIONS (2)
  - Hypogammaglobulinaemia [Unknown]
  - Respiratory tract infection viral [Unknown]

NARRATIVE: CASE EVENT DATE: 20240614
